FAERS Safety Report 10885975 (Version 1)
Quarter: 2015Q1

REPORT INFORMATION
  Report Type: Spontaneous
  Country: PL (occurrence: None)
  Receive Date: 20150302
  Receipt Date: 20150302
  Transmission Date: 20150721
  Serious: Yes (Hospitalization)
  Sender: FDA-Public Use
  Company Number: IPC201502-000107

PATIENT
  Age: 24 Year
  Sex: Male

DRUGS (3)
  1. CLONAZEPAM (CLONAZEPAM) [Suspect]
     Active Substance: CLONAZEPAM
     Route: 058
  2. OPIPRAMOL [Suspect]
     Active Substance: OPIPRAMOL
     Route: 058
  3. TRAMADOL (TRAMADOL) [Suspect]
     Active Substance: TRAMADOL
     Route: 058

REACTIONS (5)
  - Subcutaneous abscess [None]
  - Weight decreased [None]
  - Serotonin syndrome [None]
  - Drug abuse [None]
  - Disease recurrence [None]
